FAERS Safety Report 9327480 (Version 1)
Quarter: 2013Q2

REPORT INFORMATION
  Report Type: Spontaneous
  Country: US (occurrence: US)
  Receive Date: 20130604
  Receipt Date: 20130604
  Transmission Date: 20140414
  Serious: No
  Sender: FDA-Public Use
  Company Number: US-PFIZER INC-2013163745

PATIENT
  Age: 51 Year
  Sex: Female

DRUGS (9)
  1. DOXYCYCLINE HYCLATE [Suspect]
     Dosage: UNK
  2. ERYTHROMYCIN [Suspect]
     Dosage: UNK
  3. OXYCODONE HYDROCHLORIDE [Suspect]
     Dosage: UNK
  4. AMOXICILLIN [Suspect]
     Dosage: UNK
  5. AMITRIPTYLINE [Suspect]
     Dosage: UNK
  6. CODEINE SULFATE [Suspect]
     Dosage: UNK
  7. PROPOXYPHENE [Suspect]
     Dosage: UNK
  8. ROFECOXIB [Suspect]
     Dosage: UNK
  9. SULINDAC [Suspect]
     Dosage: UNK

REACTIONS (2)
  - Drug hypersensitivity [Unknown]
  - Rash [Unknown]
